FAERS Safety Report 6875103-2 (Version None)
Quarter: 2010Q3

REPORT INFORMATION
  Report Type: 
  Country: None (occurrence: None)
  Receive Date: 20100727
  Receipt Date: 20090311
  Transmission Date: 20110219
  Serious: No
  Sender: FDA-Public Use
  Company Number: US-PFIZER INC-2005002806

PATIENT

DRUGS (3)
  1. ACCUPRIL [Suspect]
     Route: 048
  2. NIFEDIPINE [Suspect]
     Route: 048
  3. CAPTOPRIL [Suspect]
     Route: 048

REACTIONS (2)
  - DRUG INTERACTION [None]
  - HYPOGLYCAEMIA [None]
